FAERS Safety Report 10189368 (Version 2)
Quarter: 2014Q4

REPORT INFORMATION
  Report Type: Spontaneous
  Country: GB (occurrence: GB)
  Receive Date: 20140522
  Receipt Date: 20141216
  Transmission Date: 20150528
  Serious: Yes (Death, Other)
  Sender: FDA-Public Use
  Company Number: GB-TEVA-481942ISR

PATIENT
  Age: 83 Year
  Sex: Female
  Weight: 53 kg

DRUGS (8)
  1. ALENDRONATE SODIUM. [Concomitant]
     Active Substance: ALENDRONATE SODIUM
  2. QUININE [Concomitant]
     Active Substance: QUININE
  3. BISOPROLOL [Concomitant]
     Active Substance: BISOPROLOL
  4. PRAVASTATIN [Concomitant]
     Active Substance: PRAVASTATIN\PRAVASTATIN SODIUM
  5. AMOXICILLIN W/CLAVULANIC ACID [Suspect]
     Active Substance: AMOXICILLIN\CLAVULANIC ACID
     Indication: PNEUMONIA
     Route: 042
     Dates: start: 20130831, end: 20130901
  6. CLOPIDOGREL [Concomitant]
     Active Substance: CLOPIDOGREL BISULFATE
  7. FUROSEMIDE. [Concomitant]
     Active Substance: FUROSEMIDE
  8. METFORMIN [Concomitant]
     Active Substance: METFORMIN HYDROCHLORIDE

REACTIONS (5)
  - Circulatory collapse [Not Recovered/Not Resolved]
  - Cardiac arrest [Fatal]
  - Drug prescribing error [Unknown]
  - Hypoxia [Not Recovered/Not Resolved]
  - Anaphylactic reaction [Fatal]

NARRATIVE: CASE EVENT DATE: 20130901
